FAERS Safety Report 12718508 (Version 7)
Quarter: 2016Q4

REPORT INFORMATION
  Report Type: Spontaneous
  Country: US (occurrence: US)
  Receive Date: 20160906
  Receipt Date: 20161111
  Transmission Date: 20170207
  Serious: Yes (Hospitalization, Other)
  Sender: FDA-Public Use
  Company Number: US-UNITED THERAPEUTICS-UNT-2016-013777

PATIENT
  Age: 3 Year
  Sex: Male
  Weight: 15.42 kg

DRUGS (4)
  1. REMODULIN [Suspect]
     Active Substance: TREPROSTINIL
     Indication: PULMONARY HYPERTENSION
     Dosage: 0.065 ?G/KG, CONTINUING
     Route: 058
     Dates: start: 20150224
  2. TRACLEER [Concomitant]
     Active Substance: BOSENTAN
     Indication: PRODUCT USED FOR UNKNOWN INDICATION
  3. REMODULIN [Suspect]
     Active Substance: TREPROSTINIL
     Dosage: 0.065 ?G/KG, CONTINUING
     Route: 058
  4. REVATIO [Concomitant]
     Active Substance: SILDENAFIL CITRATE
     Indication: PRODUCT USED FOR UNKNOWN INDICATION

REACTIONS (13)
  - Photophobia [Unknown]
  - Haematemesis [Unknown]
  - Unresponsive to stimuli [Recovered/Resolved]
  - Infusion site reaction [Unknown]
  - Faeces discoloured [Recovering/Resolving]
  - Body temperature abnormal [Recovered/Resolved]
  - Deafness [Unknown]
  - Croup infectious [Not Recovered/Not Resolved]
  - Haematochezia [Unknown]
  - Ear congestion [Unknown]
  - Vomiting [Recovered/Resolved]
  - Seizure [Not Recovered/Not Resolved]
  - Haemoglobin decreased [Unknown]

NARRATIVE: CASE EVENT DATE: 2016
